FAERS Safety Report 23296415 (Version 1)
Quarter: 2023Q4

REPORT INFORMATION
  Report Type: Spontaneous
  Country: EG (occurrence: EG)
  Receive Date: 20231214
  Receipt Date: 20231214
  Transmission Date: 20240109
  Serious: Yes (Other)
  Sender: FDA-Public Use
  Company Number: EG-HIKMA PHARMACEUTICALS-EG-H14001-23-67893

PATIENT

DRUGS (1)
  1. AMOXICILLIN\CLAVULANATE POTASSIUM [Suspect]
     Active Substance: AMOXICILLIN\CLAVULANATE POTASSIUM
     Indication: Nasopharyngitis
     Dosage: 625 MILLIGRAM, BID
     Route: 048
     Dates: start: 20231104, end: 20231107

REACTIONS (4)
  - Pyrexia [Recovered/Resolved]
  - Fatigue [Recovered/Resolved]
  - Dyspnoea [Recovered/Resolved]
  - Poor quality product administered [Recovered/Resolved]

NARRATIVE: CASE EVENT DATE: 20231104
